FAERS Safety Report 9257779 (Version 1)
Quarter: 2013Q2

REPORT INFORMATION
  Report Type: Spontaneous
  Country: US (occurrence: None)
  Receive Date: 20130424
  Receipt Date: 20130424
  Transmission Date: 20140414
  Serious: Yes (Other)
  Sender: FDA-Public Use
  Company Number: None

PATIENT
  Age: 74 Year
  Sex: Male
  Weight: 63.6 kg

DRUGS (1)
  1. TAMSULOSIN [Suspect]
     Indication: URINARY RETENTION
     Dates: start: 20120925, end: 20121231

REACTIONS (4)
  - Urinary retention [None]
  - Disease recurrence [None]
  - Product substitution issue [None]
  - Product quality issue [None]
